FAERS Safety Report 23109438 (Version 1)
Quarter: 2023Q4

REPORT INFORMATION
  Report Type: Spontaneous
  Country: US (occurrence: US)
  Receive Date: 20231026
  Receipt Date: 20231026
  Transmission Date: 20240110
  Serious: No
  Sender: FDA-Public Use
  Company Number: US-LUPIN PHARMACEUTICALS INC.-2023-09388

PATIENT

DRUGS (1)
  1. BUDESONIDE [Suspect]
     Active Substance: BUDESONIDE
     Indication: Sinusitis
     Dosage: UNK UNK, QD
     Route: 065

REACTIONS (4)
  - Aphonia [Unknown]
  - Vocal cord disorder [Unknown]
  - Product use issue [Unknown]
  - Wrong technique in product usage process [Unknown]
